FAERS Safety Report 14537562 (Version 1)
Quarter: 2018Q1

REPORT INFORMATION
  Report Type: Spontaneous
  Country: US (occurrence: US)
  Receive Date: 20180215
  Receipt Date: 20180215
  Transmission Date: 20180509
  Serious: No
  Sender: FDA-Public Use
  Company Number: US-ASTRAZENECA-2018SE19137

PATIENT
  Age: 17147 Day
  Sex: Female
  Weight: 115.2 kg

DRUGS (3)
  1. BYDUREON [Suspect]
     Active Substance: EXENATIDE
     Indication: TYPE 2 DIABETES MELLITUS
     Route: 058
     Dates: start: 20180119
  2. BYDUREON [Suspect]
     Active Substance: EXENATIDE
     Indication: TYPE 2 DIABETES MELLITUS
     Dosage: HAD STOPPED THE BYDUREON ALMOST A YEAR
     Route: 058
  3. BYDUREON [Suspect]
     Active Substance: EXENATIDE
     Indication: TYPE 2 DIABETES MELLITUS
     Route: 058

REACTIONS (6)
  - Injection site extravasation [Unknown]
  - Injection site haemorrhage [Recovered/Resolved]
  - Injection site pruritus [Not Recovered/Not Resolved]
  - Therapy cessation [Unknown]
  - Injection site urticaria [Not Recovered/Not Resolved]
  - Injection site mass [Unknown]

NARRATIVE: CASE EVENT DATE: 20180209
